FAERS Safety Report 10745528 (Version 2)
Quarter: 2015Q1

REPORT INFORMATION
  Report Type: Spontaneous
  Country: FR (occurrence: FR)
  Receive Date: 20150128
  Receipt Date: 20150210
  Transmission Date: 20150721
  Serious: Yes (Hospitalization)
  Sender: FDA-Public Use
  Company Number: FR-UCBSA-2015001561

PATIENT
  Age: 89 Year
  Sex: Female

DRUGS (7)
  1. AZILECT [Suspect]
     Active Substance: RASAGILINE MESYLATE
     Indication: PARKINSON^S DISEASE
     Dosage: 1 DF, ONCE DAILY (QD)
     Route: 048
     Dates: end: 20150102
  2. MANTADIX [Concomitant]
     Active Substance: AMANTADINE HYDROCHLORIDE
     Indication: PARKINSON^S DISEASE
     Dosage: SINCE 10 YEARS
  3. MODOPAR [Suspect]
     Active Substance: BENSERAZIDE HYDROCHLORIDE\LEVODOPA
     Indication: PARKINSON^S DISEASE
     Dosage: 4 DF, ONCE DAILY (QD)
     Route: 048
     Dates: end: 20150102
  4. PREVISCAN [Concomitant]
     Active Substance: FLUINDIONE
     Indication: PULMONARY EMBOLISM
     Dosage: 20MG (1/2, 1/4 ALTERNATED)
  5. TRIVASTAL [Suspect]
     Active Substance: PIRIBEDIL
     Dosage: 50 MG, 6X/DAY
     Route: 048
     Dates: start: 20141215, end: 20141230
  6. TRIVASTAL [Suspect]
     Active Substance: PIRIBEDIL
     Indication: PARKINSON^S DISEASE
     Dosage: 50 MG, ONCE DAILY (QD)
     Route: 048
     Dates: start: 20141212, end: 20141214
  7. NEUPRO [Suspect]
     Active Substance: ROTIGOTINE
     Indication: PARKINSON^S DISEASE
     Dosage: 8 MG, ONCE DAILY (QD)
     Route: 062
     Dates: end: 20150102

REACTIONS (6)
  - Choreoathetosis [Recovered/Resolved]
  - Agitation [Unknown]
  - Headache [Unknown]
  - Hypotension [Unknown]
  - Feeding disorder [Unknown]
  - Dyskinesia [Unknown]

NARRATIVE: CASE EVENT DATE: 20141217
